FAERS Safety Report 9032175 (Version 2)
Quarter: 2013Q1

REPORT INFORMATION
  Report Type: Report from Study
  Country: US (occurrence: US)
  Receive Date: 20130122
  Receipt Date: 20130318
  Transmission Date: 20140127
  Serious: Yes (Hospitalization, Other)
  Sender: FDA-Public Use
  Company Number: US-ASTELLAS-2013US000720

PATIENT
  Age: 64 Year
  Sex: Male
  Weight: 58 kg

DRUGS (3)
  1. ERLOTINIB TABLET [Suspect]
     Indication: NON-SMALL CELL LUNG CANCER
     Dosage: 150 MG, UID/QD
     Route: 048
     Dates: start: 20120901, end: 20121113
  2. ERLOTINIB TABLET [Suspect]
     Dosage: 100 MG, UID/QD
     Route: 048
     Dates: start: 20130101, end: 20130227
  3. NORVIR [Concomitant]
     Indication: HIV INFECTION
     Dosage: 5 MG, UID/QD
     Route: 048
     Dates: start: 20110601

REACTIONS (9)
  - Neoplasm [Unknown]
  - Scab [Not Recovered/Not Resolved]
  - Rash [Recovering/Resolving]
  - Burning sensation [Recovered/Resolved]
  - Rash [Recovered/Resolved]
  - Blood blister [Recovering/Resolving]
  - Haematidrosis [Recovering/Resolving]
  - Rash [Recovering/Resolving]
  - Rash [Recovering/Resolving]
